FAERS Safety Report 8735054 (Version 2)
Quarter: 2012Q4

REPORT INFORMATION
  Report Type: 
  Country: ES (occurrence: ES)
  Receive Date: 20120821
  Receipt Date: 20121004
  Transmission Date: 20130627
  Serious: Yes (Hospitalization, Other)
  Sender: FDA-Public Use
  Company Number: ES-ABBOTT-12P-144-0968888-00

PATIENT
  Age: 38 Year
  Sex: Male

DRUGS (3)
  1. DEPAKINE CHRONO [Suspect]
     Indication: EPILEPSY
     Route: 048
     Dates: end: 20120711
  2. DEPAKINE CHRONO [Suspect]
     Route: 048
     Dates: start: 20120712, end: 20120712
  3. SEROQUEL [Suspect]
     Indication: MANIA
     Route: 048
     Dates: start: 20120704, end: 20120717

REACTIONS (3)
  - Pleural effusion [Recovering/Resolving]
  - Constipation [Recovered/Resolved]
  - Oedema peripheral [Recovered/Resolved]
